FAERS Safety Report 9904442 (Version 1)
Quarter: 2014Q1

REPORT INFORMATION
  Report Type: Spontaneous
  Country: DE (occurrence: DE)
  Receive Date: 20140218
  Receipt Date: 20140218
  Transmission Date: 20141002
  Serious: Yes (Other)
  Sender: FDA-Public Use
  Company Number: DE-ROCHE-1351265

PATIENT
  Age: 63 Year
  Sex: Male

DRUGS (2)
  1. BONVIVA [Suspect]
     Indication: BONE DENSITY DECREASED
     Route: 042
  2. CORTISON [Concomitant]
     Indication: RHEUMATOID ARTHRITIS

REACTIONS (2)
  - Chest pain [Unknown]
  - Dyspnoea [Unknown]
